FAERS Safety Report 23747739 (Version 1)
Quarter: 2024Q2

REPORT INFORMATION
  Report Type: Spontaneous
  Country: NL (occurrence: NL)
  Receive Date: 20240416
  Receipt Date: 20240416
  Transmission Date: 20240715
  Serious: Yes (Other)
  Sender: FDA-Public Use
  Company Number: NL-CELLTRION INC.-2024NL008508

PATIENT

DRUGS (7)
  1. HERZUMA [Suspect]
     Active Substance: TRASTUZUMAB-PKRB
     Indication: Breast cancer
     Dosage: 150 MG (MILLIGRAM)
  2. DOCETAXEL [Suspect]
     Active Substance: DOCETAXEL\DOCETAXEL ANHYDROUS
     Indication: Breast cancer
     Dosage: 20 MG/ML (MILLIGRAM PER MILLILITER)
  3. PERTUZUMAB [Suspect]
     Active Substance: PERTUZUMAB
     Indication: Breast cancer
     Dosage: 420 MG
     Dates: start: 20210129, end: 20210402
  4. OMEPRAZOLE [Concomitant]
     Active Substance: OMEPRAZOLE
     Dosage: 20MG 1DD1
  5. METOCLOPRAMIDE [Concomitant]
     Active Substance: METOCLOPRAMIDE
     Dosage: TABLET, 10 MG (MILLIGRAM)
  6. DEXAMETHASONE [Concomitant]
     Active Substance: DEXAMETHASONE
     Dosage: TABLET, 4 MG (MILLIGRAM)
  7. XARELTO [Concomitant]
     Active Substance: RIVAROXABAN
     Dosage: 15MG 2DD1

REACTIONS (6)
  - Pulmonary embolism [Unknown]
  - Parosmia [Unknown]
  - Diarrhoea [Unknown]
  - Taste disorder [Unknown]
  - Nausea [Unknown]
  - Underdose [Unknown]

NARRATIVE: CASE EVENT DATE: 20210129
